FAERS Safety Report 25187592 (Version 2)
Quarter: 2025Q2

REPORT INFORMATION
  Report Type: Report from Study
  Country: RO (occurrence: RO)
  Receive Date: 20250411
  Receipt Date: 20250414
  Transmission Date: 20250717
  Serious: Yes (Death, Hospitalization, Other)
  Sender: ABBVIE
  Company Number: RO-ABBVIE-6216199

PATIENT
  Age: 79 Year
  Sex: Female

DRUGS (1)
  1. GLECAPREVIR\PIBRENTASVIR [Suspect]
     Active Substance: GLECAPREVIR\PIBRENTASVIR
     Indication: Hepatic cirrhosis
     Route: 048
     Dates: start: 20250317, end: 20250321

REACTIONS (6)
  - Cardio-respiratory arrest [Fatal]
  - Hepatitis C [Fatal]
  - Renal failure [Fatal]
  - Physical deconditioning [Not Recovered/Not Resolved]
  - Multiple organ dysfunction syndrome [Fatal]
  - General physical health deterioration [Not Recovered/Not Resolved]

NARRATIVE: CASE EVENT DATE: 20250321
